FAERS Safety Report 9165219 (Version 1)
Quarter: 2013Q1

REPORT INFORMATION
  Report Type: Spontaneous
  Country: BR (occurrence: None)
  Receive Date: 20130301
  Receipt Date: 20130301
  Transmission Date: 20140127
  Serious: Yes (Other)
  Sender: FDA-Public Use
  Company Number: ENTC2013-0078

PATIENT
  Age: 74 Year
  Sex: Female

DRUGS (1)
  1. ATALEVO (LEVODOPA, CARBIDOPA, ENTACAPONE), 1461213 [Suspect]
     Indication: PARKINSON^S DISEASE
     Dosage: 2 DF (50/12.5/200 MG) DAILY
     Route: 048

REACTIONS (5)
  - Bradykinesia [None]
  - Gait disturbance [None]
  - Dizziness [None]
  - Dysstasia [None]
  - General physical health deterioration [None]
